FAERS Safety Report 19693444 (Version 1)
Quarter: 2021Q3

REPORT INFORMATION
  Report Type: Spontaneous
  Country: US (occurrence: US)
  Receive Date: 20210813
  Receipt Date: 20210813
  Transmission Date: 20211014
  Serious: Yes (Other)
  Sender: FDA-Public Use
  Company Number: US-DRREDDYS-LIT/USA/21/0138776

PATIENT
  Age: 21 Year
  Sex: Female

DRUGS (14)
  1. FAMOTIDINE. [Suspect]
     Active Substance: FAMOTIDINE
     Indication: GUILLAIN-BARRE SYNDROME
  2. ACETAMINOPHEN. [Suspect]
     Active Substance: ACETAMINOPHEN
     Indication: GUILLAIN-BARRE SYNDROME
  3. PROMETHAZINE [Suspect]
     Active Substance: PROMETHAZINE HYDROCHLORIDE
     Indication: GUILLAIN-BARRE SYNDROME
  4. DICYCLOMINE HYDROCHLORIDE INJECTION [Suspect]
     Active Substance: DICYCLOMINE HYDROCHLORIDE
     Indication: GUILLAIN-BARRE SYNDROME
  5. DIPHENHYDRAMINE HYDROCHLORIDE. [Suspect]
     Active Substance: DIPHENHYDRAMINE HYDROCHLORIDE
     Indication: GUILLAIN-BARRE SYNDROME
  6. PANTOPRAZOLE SODIUM DR TABLETS 20MG AND  40MG [Suspect]
     Active Substance: PANTOPRAZOLE SODIUM
     Indication: GUILLAIN-BARRE SYNDROME
  7. PREGABALIN. [Suspect]
     Active Substance: PREGABALIN
     Indication: GUILLAIN-BARRE SYNDROME
  8. ONDANSETRON [Suspect]
     Active Substance: ONDANSETRON
     Indication: GUILLAIN-BARRE SYNDROME
  9. IMMUNE GLOBULIN (IVIG) [Suspect]
     Active Substance: HUMAN IMMUNOGLOBULIN G
     Indication: GUILLAIN-BARRE SYNDROME
     Dosage: DAILY INFUSIONS
     Route: 042
  10. SCOPOLAMINE [Suspect]
     Active Substance: SCOPOLAMINE
     Indication: GUILLAIN-BARRE SYNDROME
  11. ALUMINIUM HYDROXIDE/MAGNESIUM HYDROXIDE/SIMETHICONE [Suspect]
     Active Substance: ALUMINUM HYDROXIDE\DIMETHICONE\MAGNESIUM HYDROXIDE
     Indication: GUILLAIN-BARRE SYNDROME
  12. ERYTHROMYCIN. [Suspect]
     Active Substance: ERYTHROMYCIN
     Indication: GUILLAIN-BARRE SYNDROME
  13. METOCLOPRAMIDE. [Suspect]
     Active Substance: METOCLOPRAMIDE
     Indication: GUILLAIN-BARRE SYNDROME
  14. TRAMADOL. [Suspect]
     Active Substance: TRAMADOL
     Indication: GUILLAIN-BARRE SYNDROME

REACTIONS (1)
  - Treatment failure [Unknown]
